FAERS Safety Report 20065861 (Version 1)
Quarter: 2021Q4

REPORT INFORMATION
  Report Type: Spontaneous
  Country: US (occurrence: None)
  Receive Date: 20211114
  Receipt Date: 20211114
  Transmission Date: 20220303
  Serious: No
  Sender: FDA-Public Use
  Company Number: 2021A797544

PATIENT
  Age: 74 Year
  Sex: Male
  Weight: 131.5 kg

DRUGS (3)
  1. FARXIGA [Suspect]
     Active Substance: DAPAGLIFLOZIN PROPANEDIOL
     Indication: Protein urine present
     Route: 048
     Dates: start: 202106, end: 20211102
  2. FARXIGA [Suspect]
     Active Substance: DAPAGLIFLOZIN PROPANEDIOL
     Indication: Diabetes mellitus
     Route: 048
     Dates: start: 202106, end: 20211102
  3. METOPROLOL SUCCINATE [Suspect]
     Active Substance: METOPROLOL SUCCINATE
     Indication: Hypertension
     Route: 048

REACTIONS (10)
  - Abdominal pain upper [Recovering/Resolving]
  - Nausea [Recovering/Resolving]
  - Vomiting [Recovering/Resolving]
  - Pyrexia [Recovered/Resolved]
  - Chills [Recovered/Resolved]
  - Weight decreased [Unknown]
  - Atrial fibrillation [Not Recovered/Not Resolved]
  - Body height decreased [Not Recovered/Not Resolved]
  - Protein urine present [Recovering/Resolving]
  - Diabetes mellitus [Unknown]

NARRATIVE: CASE EVENT DATE: 20210601
